FAERS Safety Report 6657237-0 (Version None)
Quarter: 2010Q1

REPORT INFORMATION
  Report Type: 
  Country: None (occurrence: None)
  Receive Date: 20100330
  Receipt Date: 20100322
  Transmission Date: 20100710
  Serious: Yes (Other)
  Sender: FDA-Public Use
  Company Number: AU-WYE-G05794310

PATIENT
  Sex: Male

DRUGS (1)
  1. EFFEXOR XR [Suspect]
     Dosage: ^HAS BEEN COMING OFF 150MG AND CEASED^

REACTIONS (6)
  - DRUG WITHDRAWAL SYNDROME [None]
  - HALLUCINATION [None]
  - INTENTIONAL DRUG MISUSE [None]
  - NIGHTMARE [None]
  - SUICIDAL IDEATION [None]
  - VERTIGO [None]
